FAERS Safety Report 6395002-2 (Version None)
Quarter: 2009Q4

REPORT INFORMATION
  Report Type: 
  Country: None (occurrence: None)
  Receive Date: 20091009
  Receipt Date: 20091001
  Transmission Date: 20100525
  Serious: Yes (Hospitalization)
  Sender: FDA-Public Use
  Company Number: US-BAYER-200935066NA

PATIENT
  Sex: Female

DRUGS (1)
  1. CIPROFLOXACIN HYDROCHLORIDE [Suspect]
     Indication: GALLBLADDER PAIN
     Dates: start: 20070929

REACTIONS (8)
  - DEFORMITY [None]
  - INTERNAL INJURY [None]
  - MUCOUS MEMBRANE DISORDER [None]
  - NERVE INJURY [None]
  - NERVOUS SYSTEM DISORDER [None]
  - PAIN [None]
  - STEVENS-JOHNSON SYNDROME [None]
  - THERMAL BURN [None]
